FAERS Safety Report 25040781 (Version 1)
Quarter: 2025Q1

REPORT INFORMATION
  Report Type: Spontaneous
  Country: US (occurrence: None)
  Receive Date: 20250305
  Receipt Date: 20250305
  Transmission Date: 20250409
  Serious: Yes (Hospitalization)
  Sender: FDA-CTU
  Company Number: None

PATIENT
  Age: 65 Year
  Sex: Male
  Weight: 83 kg

DRUGS (1)
  1. XELODA [Suspect]
     Active Substance: CAPECITABINE

REACTIONS (5)
  - Dyspnoea [None]
  - Proctalgia [None]
  - Poor quality sleep [None]
  - Memory impairment [None]
  - Flatulence [None]

NARRATIVE: CASE EVENT DATE: 20250225
